FAERS Safety Report 5209499-4 (Version None)
Quarter: 2006Q4

REPORT INFORMATION
  Report Type: 
  Country: None (occurrence: None)
  Receive Date: 20061101
  Receipt Date: 20060607
  Transmission Date: 20070319
  Serious: No
  Sender: FDA-Public Use
  Company Number: 2006PV015313

PATIENT
  Age: 53 Year
  Sex: Female
  Weight: 99.7913 kg

DRUGS (4)
  1. SYMLIN [Suspect]
     Indication: DIABETES MELLITUS NON-INSULIN-DEPENDENT
     Dosage: 60 MCG; BID; SC
     Route: 058
     Dates: start: 20060607
  2. HUMALOG [Suspect]
     Dosage: SEE IMAGE
     Dates: start: 20060607, end: 20060607
  3. HUMALOG [Suspect]
     Dosage: SEE IMAGE
     Dates: start: 19940101
  4. GLYBURIDE [Concomitant]

REACTIONS (4)
  - BLOOD GLUCOSE DECREASED [None]
  - HEART RATE INCREASED [None]
  - HYPERHIDROSIS [None]
  - VISUAL DISTURBANCE [None]
